FAERS Safety Report 25601872 (Version 3)
Quarter: 2025Q3

REPORT INFORMATION
  Report Type: Spontaneous
  Country: US (occurrence: US)
  Receive Date: 20250724
  Receipt Date: 20250924
  Transmission Date: 20251021
  Serious: No
  Sender: PFIZER
  Company Number: US-PFIZER INC-202500144905

PATIENT
  Age: 72 Year
  Sex: Female

DRUGS (1)
  1. GENOTROPIN [Suspect]
     Active Substance: SOMATROPIN

REACTIONS (1)
  - Device mechanical issue [Unknown]
